FAERS Safety Report 5922209-8 (Version None)
Quarter: 2008Q3

REPORT INFORMATION
  Report Type: 
  Country: None (occurrence: None)
  Receive Date: 20080909
  Receipt Date: 20080624
  Transmission Date: 20090109
  Serious: Yes (Death, Life-Threatening, Hospitalization)
  Sender: FDA-Public Use
  Company Number: 163-20785-08060524

PATIENT
  Age: 53 Year
  Sex: Female

DRUGS (2)
  1. THALOMID [Suspect]
     Indication: OVARIAN CANCER
     Dosage: 200 MG, 1 IN 1 D, ORAL : 1 IN 1 D, ORAL
     Route: 048
     Dates: start: 20080305, end: 20080404
  2. THALOMID [Suspect]
     Indication: OVARIAN CANCER
     Dosage: 200 MG, 1 IN 1 D, ORAL : 1 IN 1 D, ORAL
     Route: 048
     Dates: start: 20080404, end: 20080501

REACTIONS (5)
  - GASTROINTESTINAL HAEMORRHAGE [None]
  - HAEMATEMESIS [None]
  - HAEMOGLOBIN DECREASED [None]
  - NEOPLASM PROGRESSION [None]
  - REFUSAL OF TREATMENT BY PATIENT [None]
